FAERS Safety Report 18800931 (Version 1)
Quarter: 2021Q1

REPORT INFORMATION
  Report Type: Spontaneous
  Country: US (occurrence: US)
  Receive Date: 20210128
  Receipt Date: 20210128
  Transmission Date: 20210419
  Serious: Yes (Other)
  Sender: FDA-Public Use
  Company Number: US-GRANULES-US-2021GRALIT00044

PATIENT
  Age: 65 Year
  Sex: Female

DRUGS (3)
  1. POTASSIUM [Interacting]
     Active Substance: POTASSIUM
     Indication: RENAL TUBULAR ACIDOSIS
     Route: 065
  2. IBUPROFEN. [Suspect]
     Active Substance: IBUPROFEN
     Indication: PRODUCT USED FOR UNKNOWN INDICATION
     Route: 065
  3. BICARBONATE [Interacting]
     Active Substance: SODIUM BICARBONATE
     Indication: RENAL TUBULAR ACIDOSIS
     Route: 065

REACTIONS (2)
  - Renal tubular acidosis [Recovering/Resolving]
  - Delirium [Recovering/Resolving]
